FAERS Safety Report 9219625 (Version 2)
Quarter: 2013Q2

REPORT INFORMATION
  Report Type: Report from Study
  Country: US (occurrence: US)
  Receive Date: 20130409
  Receipt Date: 20130523
  Transmission Date: 20140414
  Serious: Yes (Hospitalization)
  Sender: FDA-Public Use
  Company Number: US-ROCHE-1207108

PATIENT
  Age: 55 Year
  Sex: Female
  Weight: 61.5 kg

DRUGS (1)
  1. TRASTUZUMAB EMTANSINE [Suspect]
     Indication: BREAST CANCER
     Dosage: TOTAL DOSE: 221MG. DATE OF LAST DOSE PRIOR TO SAE: 28/JAN/2013
     Route: 042
     Dates: start: 20130128

REACTIONS (1)
  - Cardiac tamponade [Not Recovered/Not Resolved]
